FAERS Safety Report 13500107 (Version 2)
Quarter: 2017Q2

REPORT INFORMATION
  Report Type: Report from Study
  Country: US (occurrence: US)
  Receive Date: 20170501
  Receipt Date: 20170505
  Transmission Date: 20170830
  Serious: Yes (Hospitalization)
  Sender: FDA-Public Use
  Company Number: US-PFIZER INC-2017169761

PATIENT
  Age: 59 Year
  Sex: Male
  Weight: 74.38 kg

DRUGS (6)
  1. VARENICLINE TARTRATE [Suspect]
     Active Substance: VARENICLINE TARTRATE
     Indication: SMOKING CESSATION THERAPY
     Dosage: 0.5 MG, 1X/DAY DAYS1-3
     Route: 048
     Dates: start: 20170221, end: 20170223
  2. VARENICLINE TARTRATE [Suspect]
     Active Substance: VARENICLINE TARTRATE
     Dosage: 0.5 MG, 2X/DAY DAYS 4-7
     Route: 048
     Dates: start: 20170224, end: 20170228
  3. ZITHROMAX [Suspect]
     Active Substance: AZITHROMYCIN DIHYDRATE
     Indication: UPPER RESPIRATORY TRACT INFECTION
     Dosage: 500 MG (2 TABLETS), 1X/DAY
     Route: 048
     Dates: start: 20170329, end: 20170329
  4. ZITHROMAX [Suspect]
     Active Substance: AZITHROMYCIN DIHYDRATE
     Dosage: 250 MG (1 TABLET), 1X/DAY
     Route: 048
     Dates: start: 20170330, end: 20170331
  5. OPDIVO [Concomitant]
     Active Substance: NIVOLUMAB
     Dosage: UNK
     Dates: start: 20160915
  6. SYNTHROID [Concomitant]
     Active Substance: LEVOTHYROXINE SODIUM
     Dosage: UNK
     Dates: start: 20170115

REACTIONS (2)
  - Diarrhoea [Recovering/Resolving]
  - Dehydration [Recovering/Resolving]

NARRATIVE: CASE EVENT DATE: 20170331
